FAERS Safety Report 15139950 (Version 1)
Quarter: 2018Q3

REPORT INFORMATION
  Report Type: Spontaneous
  Country: US (occurrence: US)
  Receive Date: 20180713
  Receipt Date: 20180713
  Transmission Date: 20181010
  Serious: Yes (Other)
  Sender: FDA-Public Use
  Company Number: US-SA-2018SA185123

PATIENT
  Age: 60 Year
  Sex: Male

DRUGS (1)
  1. TOUJEO [Suspect]
     Active Substance: INSULIN GLARGINE
     Indication: DIABETES MELLITUS
     Dosage: 72 U, QD
     Route: 065

REACTIONS (2)
  - Blood glucose increased [Unknown]
  - Dizziness [Unknown]
